FAERS Safety Report 8374315 (Version 3)
Quarter: 2012Q4

REPORT INFORMATION
  Report Type: 
  Country: US (occurrence: US)
  Receive Date: 20120130
  Receipt Date: 20121019
  Transmission Date: 20130627
  Serious: Yes (Death, Hospitalization)
  Sender: FDA-Public Use
  Company Number: US-BRISTOL-MYERS SQUIBB COMPANY-16288383

PATIENT
  Age: 57 Year
  Sex: Male

DRUGS (4)
  1. YERVOY [Suspect]
     Indication: METASTATIC MALIGNANT MELANOMA
     Route: 042
     Dates: start: 20110629, end: 20110629
  2. NEXIUM [Concomitant]
     Route: 048
  3. VALIUM [Concomitant]
     Route: 048
  4. METOPROLOL [Concomitant]
     Route: 048

REACTIONS (3)
  - Malignant neoplasm progression [Fatal]
  - Acute hepatic failure [Not Recovered/Not Resolved]
  - Anaemia [Unknown]
